FAERS Safety Report 9047286 (Version 1)
Quarter: 2013Q1

REPORT INFORMATION
  Report Type: Report from Study
  Country: None (occurrence: US)
  Receive Date: 20130131
  Receipt Date: 20130131
  Transmission Date: 20140127
  Serious: No
  Sender: FDA-Public Use
  Company Number: US-ABBOTT-12P-163-0976920-00

PATIENT
  Age: 18 None
  Sex: Male
  Weight: 54 kg

DRUGS (7)
  1. HUMIRA [Suspect]
     Indication: CROHN^S DISEASE
     Route: 058
     Dates: start: 20120909
  2. HUMIRA [Suspect]
     Dates: start: 20120809, end: 20120809
  3. HUMIRA [Suspect]
     Dates: start: 20120826, end: 20120826
  4. IMURAN [Concomitant]
     Indication: CROHN^S DISEASE
     Dates: end: 201208
  5. VITAMIN B12 [Concomitant]
     Indication: VITAMIN SUPPLEMENTATION
  6. PREVACID [Concomitant]
     Indication: PRODUCT USED FOR UNKNOWN INDICATION
  7. MULTIVITAMIN [Concomitant]
     Indication: PRODUCT USED FOR UNKNOWN INDICATION

REACTIONS (12)
  - Injection site mass [Recovered/Resolved]
  - Injection site reaction [Recovered/Resolved with Sequelae]
  - Injection site swelling [Recovered/Resolved]
  - Injection site pain [Recovered/Resolved]
  - Injection site induration [Recovered/Resolved]
  - Injection site erythema [Recovered/Resolved]
  - Injection site mass [Not Recovered/Not Resolved]
  - Injection site induration [Not Recovered/Not Resolved]
  - Injection site erythema [Not Recovered/Not Resolved]
  - Injection site pain [Not Recovered/Not Resolved]
  - Injection site swelling [Not Recovered/Not Resolved]
  - Injection site pruritus [Not Recovered/Not Resolved]
